FAERS Safety Report 9144710 (Version 1)
Quarter: 2013Q1

REPORT INFORMATION
  Report Type: Report from Study
  Country: CA (occurrence: CA)
  Receive Date: 20130306
  Receipt Date: 20130306
  Transmission Date: 20140127
  Serious: Yes (Other)
  Sender: FDA-Public Use
  Company Number: CA-UCBSA-079840

PATIENT
  Age: 58 Year
  Sex: Female

DRUGS (5)
  1. CIMZIA [Suspect]
     Indication: RHEUMATOID ARTHRITIS
     Dosage: DOSE: 200 MG
     Route: 058
     Dates: start: 20130107, end: 20130206
  2. IBUPROFEN [Concomitant]
     Indication: PAIN
     Dosage: UNKNOWN DOSE; PM
     Route: 048
  3. METHOTREXATE [Concomitant]
     Indication: RHEUMATOID ARTHRITIS
     Dosage: 20 MG; (SUFFICIENT QUANTITY)
     Route: 048
     Dates: start: 20110614
  4. FOLIC ACID [Concomitant]
     Indication: VITAMIN SUPPLEMENTATION
     Dosage: 5 MG; 6/7 DAYS
     Route: 048
     Dates: start: 20110614
  5. TYLENOL [Concomitant]
     Indication: PAIN
     Dosage: 2; UNKNOWN DOSE; PM
     Route: 048

REACTIONS (1)
  - Myositis [Recovering/Resolving]
